FAERS Safety Report 24992712 (Version 1)
Quarter: 2025Q1

REPORT INFORMATION
  Report Type: Spontaneous
  Country: US (occurrence: US)
  Receive Date: 20250221
  Receipt Date: 20250221
  Transmission Date: 20250408
  Serious: No
  Sender: Kenvue
  Company Number: US-KENVUE-20250108588

PATIENT
  Sex: Female

DRUGS (2)
  1. PEPCID AC [Suspect]
     Active Substance: FAMOTIDINE
     Indication: Antacid therapy
     Dosage: 1 DOSAGE FORM, TWICE A DAY
     Route: 065
     Dates: start: 20241220
  2. PEPCID AC [Suspect]
     Active Substance: FAMOTIDINE
     Indication: Dyspepsia

REACTIONS (1)
  - Drug ineffective [Unknown]
